FAERS Safety Report 19058908 (Version 3)
Quarter: 2021Q2

REPORT INFORMATION
  Report Type: Spontaneous
  Country: JP (occurrence: JP)
  Receive Date: 20210325
  Receipt Date: 20210427
  Transmission Date: 20210717
  Serious: Yes (Hospitalization, Other)
  Sender: FDA-Public Use
  Company Number: JP-TAKEDA-2021TUS017884

PATIENT
  Age: 3 Year
  Sex: Female

DRUGS (2)
  1. INTUNIV [Suspect]
     Active Substance: GUANFACINE HYDROCHLORIDE
     Indication: PRODUCT USED FOR UNKNOWN INDICATION
     Dosage: 12 DOSAGE FORM
     Route: 048
  2. INTUNIV [Suspect]
     Active Substance: GUANFACINE HYDROCHLORIDE
     Dosage: 6 MILLIGRAM
     Route: 048

REACTIONS (4)
  - Somnolence [Recovered/Resolved]
  - Bradycardia [Recovered/Resolved]
  - Accidental exposure to product by child [Unknown]
  - Accidental overdose [Unknown]

NARRATIVE: CASE EVENT DATE: 20210311
